APPROVED DRUG PRODUCT: OXYBUTYNIN
Active Ingredient: OXYBUTYNIN
Strength: 3.9MG/24HR
Dosage Form/Route: FILM, EXTENDED RELEASE;TRANSDERMAL
Application: A090526 | Product #001
Applicant: BARR LABORATORIES INC SUB TEVA PHARMACEUTICALS USA
Approved: Mar 4, 2014 | RLD: No | RS: No | Type: DISCN